FAERS Safety Report 13625785 (Version 1)
Quarter: 2017Q2

REPORT INFORMATION
  Report Type: Spontaneous
  Country: CN (occurrence: CN)
  Receive Date: 20170607
  Receipt Date: 20170607
  Transmission Date: 20170830
  Serious: Yes (Other)
  Sender: FDA-Public Use
  Company Number: CN-PFIZER INC-2017244896

PATIENT
  Sex: Male

DRUGS (1)
  1. VIAGRA [Suspect]
     Active Substance: SILDENAFIL CITRATE
     Route: 048

REACTIONS (4)
  - Suspected counterfeit product [Recovered/Resolved]
  - Oesophageal haemorrhage [Recovered/Resolved]
  - Oesophageal oedema [Recovered/Resolved]
  - Oesophageal pain [Recovered/Resolved]
